FAERS Safety Report 5412036-2 (Version None)
Quarter: 2007Q3

REPORT INFORMATION
  Report Type: 
  Country: None (occurrence: None)
  Receive Date: 20070813
  Receipt Date: 20070808
  Transmission Date: 20080115
  Serious: No
  Sender: FDA-Public Use
  Company Number: US-RB-007601-07

PATIENT
  Sex: Female

DRUGS (4)
  1. SUBOXONE [Suspect]
     Route: 060
     Dates: start: 20070507, end: 20070508
  2. SUBOXONE [Suspect]
     Route: 060
     Dates: start: 20070509
  3. LEXAPRO [Concomitant]
     Indication: DEPRESSION
     Route: 048
  4. VISTARIL [Concomitant]
     Indication: ANXIETY
     Route: 048

REACTIONS (1)
  - OEDEMA PERIPHERAL [None]
